FAERS Safety Report 16748258 (Version 1)
Quarter: 2019Q3

REPORT INFORMATION
  Report Type: Spontaneous
  Country: RO (occurrence: RO)
  Receive Date: 20190827
  Receipt Date: 20190827
  Transmission Date: 20191005
  Serious: Yes (Other)
  Sender: FDA-Public Use
  Company Number: RO-EX USA HOLDINGS-EXHL20192366

PATIENT
  Age: 36 Year
  Sex: Male

DRUGS (1)
  1. CLOBETASOL PROPIONATE. [Suspect]
     Active Substance: CLOBETASOL PROPIONATE
     Indication: LICHEN SCLEROSUS
     Dosage: UNKNOWN
     Route: 061

REACTIONS (3)
  - Skin haemorrhage [Unknown]
  - Intentional product use issue [None]
  - Drug ineffective for unapproved indication [Unknown]
